FAERS Safety Report 6371428-8 (Version None)
Quarter: 2009Q3

REPORT INFORMATION
  Report Type: 
  Country: None (occurrence: None)
  Receive Date: 20090923
  Receipt Date: 20070622
  Transmission Date: 20100115
  Serious: Yes (Other)
  Sender: FDA-Public Use
  Company Number: US-ASTRAZENECA-2007UW09325

PATIENT
  Age: 18452 Day
  Sex: Male
  Weight: 114.3 kg

DRUGS (13)
  1. SEROQUEL [Suspect]
     Indication: BIPOLAR DISORDER
     Dosage: 100 MG ONE TABLET AT BED TIME
     Route: 048
     Dates: start: 20030730
  2. SEROQUEL [Suspect]
     Indication: DEPRESSION
     Dosage: 100 MG ONE TABLET AT BED TIME
     Route: 048
     Dates: start: 20030730
  3. SEROQUEL [Suspect]
     Indication: INSOMNIA
     Dosage: 100 MG ONE TABLET AT BED TIME
     Route: 048
     Dates: start: 20030730
  4. SEROQUEL [Suspect]
     Dosage: 25 MG  2 TABLETS AT BEDTIME
     Route: 048
     Dates: start: 20031001, end: 20050801
  5. SEROQUEL [Suspect]
     Dosage: 25 MG  2 TABLETS AT BEDTIME
     Route: 048
     Dates: start: 20031001, end: 20050801
  6. SEROQUEL [Suspect]
     Dosage: 25 MG  2 TABLETS AT BEDTIME
     Route: 048
     Dates: start: 20031001, end: 20050801
  7. PROPRANOLOL [Concomitant]
     Dosage: 10 - 20 MG
     Route: 048
     Dates: start: 20020528
  8. MIRTAZAPINE [Concomitant]
     Dosage: 30 - 45 MG
     Route: 048
     Dates: start: 20030317
  9. FLUOXETINE [Concomitant]
     Dosage: 10 - 40 MG
     Route: 048
     Dates: start: 20010817
  10. AVALIDE [Concomitant]
     Dosage: 300/12.5 MG
     Route: 048
     Dates: start: 20030317
  11. WELLBUTRIN [Concomitant]
     Dosage: 100 - 150 MG
     Route: 048
     Dates: start: 20000620
  12. DEPAKOTE [Concomitant]
     Dosage: 500 - 1000 MG
     Route: 048
     Dates: start: 20010905
  13. SINGULAIR [Concomitant]
     Route: 048
     Dates: start: 20031016

REACTIONS (2)
  - DIABETES MELLITUS [None]
  - TYPE 2 DIABETES MELLITUS [None]
